FAERS Safety Report 4647647-5 (Version None)
Quarter: 2005Q2

REPORT INFORMATION
  Report Type: 
  Country: None (occurrence: None)
  Receive Date: 20050426
  Receipt Date: 20050418
  Transmission Date: 20051028
  Serious: Yes (Other)
  Sender: FDA-Public Use
  Company Number: 2005061909

PATIENT
  Age: 61 Year
  Sex: Male
  Weight: 108.8633 kg

DRUGS (1)
  1. LIPITOR [Suspect]
     Indication: BLOOD CHOLESTEROL INCREASED
     Dosage: 10 MG (10MG, 1 IN 1 D), ORAL
     Route: 048
     Dates: start: 20030101, end: 20041201

REACTIONS (3)
  - FEELING ABNORMAL [None]
  - MUSCLE DISORDER [None]
  - PARALYSIS [None]
